FAERS Safety Report 6428090-5 (Version None)
Quarter: 2009Q4

REPORT INFORMATION
  Report Type: 
  Country: None (occurrence: None)
  Receive Date: 20091030
  Receipt Date: 20091020
  Transmission Date: 20100525
  Serious: Yes (Hospitalization)
  Sender: FDA-Public Use
  Company Number: GXKR2009GB02862

PATIENT
  Age: 43 Year
  Sex: Female
  Weight: 163.5 kg

DRUGS (23)
  1. LISINOPRIL [Suspect]
     Dosage: 20 MG, ORAL
     Route: 048
     Dates: end: 20081013
  2. ACOMPLIA [Suspect]
     Indication: OBESITY
     Dosage: 20 MG, ORAL
     Route: 048
     Dates: start: 20070626, end: 20081013
  3. IRBESARTAN [Suspect]
     Dosage: 150 MG, ORAL
     Route: 048
     Dates: end: 20081013
  4. SPIRONOLACTONE [Suspect]
     Dosage: 50 MG, ORAL
     Route: 048
     Dates: end: 20081013
  5. ASPIRIN [Concomitant]
  6. ATENOLOL [Concomitant]
  7. ATORVASTATIN CALCIUM [Concomitant]
  8. BISOPROLOL FUMARATE [Concomitant]
  9. CODEINE SUL TAB [Concomitant]
  10. DILTIAZEM [Concomitant]
  11. FUROSEMIDE [Concomitant]
  12. GLYCERYL TRINITRATE (GLYCERYL TRINITRATE) [Concomitant]
  13. ISOSORBIDE MONONITRATE [Concomitant]
  14. ISPAGHULA HUSK (PLANTAGO OVATA HUSK) [Concomitant]
  15. LIDOCAINE (LIDOCAINE) , 2 % [Concomitant]
  16. NITRAZEPAM [Concomitant]
  17. OMACOR /01403701/ (OMEGA-3 MARINE TRIGLYCERIDES) [Concomitant]
  18. OMEGA 3 FISH OIL (FISH OIL) [Concomitant]
  19. OMEPRAZOLE [Concomitant]
  20. PARACETAMOL (PARACETAMOL) [Concomitant]
  21. QUININE SULFATE (QUININE SULFATE) [Concomitant]
  22. TRIMETHOPRIM [Concomitant]
  23. VESICARE [Concomitant]

REACTIONS (11)
  - ANAL HAEMORRHAGE [None]
  - ATRIAL FIBRILLATION [None]
  - DEHYDRATION [None]
  - FEAR OF EATING [None]
  - GASTROOESOPHAGEAL REFLUX DISEASE [None]
  - HYPERTENSION [None]
  - NAUSEA [None]
  - PYREXIA [None]
  - RECTAL HAEMORRHAGE [None]
  - RENAL FAILURE ACUTE [None]
  - WEIGHT INCREASED [None]
